FAERS Safety Report 7311396-5 (Version None)
Quarter: 2011Q1

REPORT INFORMATION
  Report Type: 
  Country: None (occurrence: None)
  Receive Date: 20110224
  Receipt Date: 20110218
  Transmission Date: 20110831
  Serious: Yes (Other)
  Sender: FDA-Public Use
  Company Number: DE-PFIZER INC-2011036215

PATIENT
  Age: 47 Year
  Sex: Female

DRUGS (5)
  1. PERPHENAZINE [Concomitant]
     Dosage: 4 MG, UNK
  2. ZOLOFT [Suspect]
     Dosage: 50 MG
     Dates: start: 20110101
  3. CITALOPRAM [Concomitant]
     Dosage: 40 MG
     Dates: end: 20110101
  4. AMITRIPTYLINE [Concomitant]
     Dosage: 75 MG, UNK
  5. CITALOPRAM [Concomitant]
     Dosage: 20 MG
     Dates: start: 20110101, end: 20110101

REACTIONS (7)
  - HEPATIC ENZYME INCREASED [None]
  - MYALGIA [None]
  - DIARRHOEA [None]
  - LEUKOCYTOSIS [None]
  - BLOOD COUNT ABNORMAL [None]
  - JOINT SWELLING [None]
  - ARTHRALGIA [None]
